FAERS Safety Report 14406620 (Version 2)
Quarter: 2018Q1

REPORT INFORMATION
  Report Type: Spontaneous
  Country: NL (occurrence: NL)
  Receive Date: 20180118
  Receipt Date: 20180223
  Transmission Date: 20180509
  Serious: Yes (Other)
  Sender: FDA-Public Use
  Company Number: PHHY2018NL002997

PATIENT
  Age: 78 Year
  Sex: Male
  Weight: 83 kg

DRUGS (1)
  1. VALSARTAN SANDOZ [Suspect]
     Active Substance: VALSARTAN
     Indication: HYPERTENSION
     Dosage: 40 MG, QD
     Route: 065
     Dates: start: 2015, end: 20180206

REACTIONS (4)
  - Injury [Unknown]
  - Loss of consciousness [Recovered/Resolved]
  - Face injury [Unknown]
  - Scratch [Unknown]
